FAERS Safety Report 23723471 (Version 1)
Quarter: 2024Q2

REPORT INFORMATION
  Report Type: Spontaneous
  Country: US (occurrence: None)
  Receive Date: 20240409
  Receipt Date: 20240409
  Transmission Date: 20240716
  Serious: No
  Sender: FDA-Public Use
  Company Number: None

PATIENT
  Age: 55 Year
  Sex: Female
  Weight: 68.95 kg

DRUGS (6)
  1. CAPECITABINE [Suspect]
     Active Substance: CAPECITABINE
     Indication: Breast cancer female
     Dosage: FREQUENCY : TWICE A DAY;?
     Route: 048
     Dates: start: 20240327
  2. FULVESTRANT [Concomitant]
     Active Substance: FULVESTRANT
  3. BIOTIN [Concomitant]
  4. CLACIUM 500+ D [Concomitant]
  5. MULTIVITAMIN WOMEN 50+ [Concomitant]
  6. VITAMIN D [Concomitant]
     Active Substance: VITAMIN D NOS

REACTIONS (2)
  - Pain [None]
  - Fatigue [None]

NARRATIVE: CASE EVENT DATE: 20240327
